FAERS Safety Report 20585308 (Version 1)
Quarter: 2022Q1

REPORT INFORMATION
  Report Type: Spontaneous
  Country: US (occurrence: US)
  Receive Date: 20220312
  Receipt Date: 20220312
  Transmission Date: 20220424
  Serious: Yes (Hospitalization, Other)
  Sender: FDA-Public Use
  Company Number: US-AMGEN-USASP2022039487

PATIENT
  Age: 43 Year
  Sex: Female

DRUGS (1)
  1. BEVACIZUMAB [Suspect]
     Active Substance: BEVACIZUMAB
     Indication: Respiratory papilloma
     Dosage: INTERMITTENT INFUSIONS
     Route: 065

REACTIONS (11)
  - Respiratory distress [Unknown]
  - Acute respiratory failure [Unknown]
  - Hypertension [Unknown]
  - Proteinuria [Unknown]
  - Drug effective for unapproved indication [Unknown]
  - Off label use [Unknown]
  - Eosinophilia [Unknown]
  - Obstructive airways disorder [Unknown]
  - Atelectasis [Unknown]
  - Respiratory papilloma [Unknown]
  - Asthma [Unknown]
